FAERS Safety Report 5269161-9 (Version None)
Quarter: 2007Q1

REPORT INFORMATION
  Report Type: 
  Country: None (occurrence: None)
  Receive Date: 20070319
  Receipt Date: 20070313
  Transmission Date: 20070707
  Serious: Yes (Life-Threatening, Hospitalization)
  Sender: FDA-Public Use
  Company Number: MY-ROXANE LABORATORIES, INC-2007-BP-03499RO

PATIENT
  Age: 3 Week
  Sex: Male

DRUGS (2)
  1. ZIDOVUDINE [Suspect]
     Indication: CONGENITAL HIV INFECTION
     Route: 042
  2. ZIDOVUDINE [Suspect]
     Indication: HIV INFECTION
     Route: 048

REACTIONS (10)
  - ABDOMINAL DISTENSION [None]
  - DEHYDRATION [None]
  - DEVELOPMENTAL DELAY [None]
  - DIARRHOEA [None]
  - DYSKINESIA [None]
  - FEEDING DISORDER NEONATAL [None]
  - HYPERLACTACIDAEMIA [None]
  - PYREXIA [None]
  - RESPIRATORY ACIDOSIS [None]
  - VOMITING [None]
